FAERS Safety Report 5963051-1 (Version None)
Quarter: 2008Q4

REPORT INFORMATION
  Report Type: 
  Country: None (occurrence: None)
  Receive Date: 20081120
  Receipt Date: 20081110
  Transmission Date: 20090506
  Serious: Yes (Hospitalization, Other)
  Sender: FDA-Public Use
  Company Number: 2008AP003038

PATIENT
  Age: 52 Year
  Sex: Male

DRUGS (7)
  1. CARVEDILOL [Suspect]
     Dosage: 6.23 MG; BID
  2. LISINOPRIL [Suspect]
     Dosage: 20 MG; QD
  3. SPIRONOLACTONE [Suspect]
     Dosage: 25 MG; TIW
  4. DEXAMETHASONE TAB [Suspect]
     Dosage: 5 MG; BID
  5. LIDOCAINE HCL VISCOUS [Suspect]
     Indication: ORAL PAIN
  6. IBUPROFEN TABLETS [Suspect]
     Indication: HEADACHE
     Dosage: 800 MG; PRN
  7. FUROSEMIDE [Suspect]
     Dosage: 80 MG; QD

REACTIONS (17)
  - BLISTER [None]
  - BREATH ODOUR [None]
  - COMA [None]
  - CONJUNCTIVAL SCAR [None]
  - HYPERSENSITIVITY [None]
  - ORAL PAIN [None]
  - POOR PERSONAL HYGIENE [None]
  - PYREXIA [None]
  - RASH [None]
  - SCAR [None]
  - SEPSIS [None]
  - SKIN DEPIGMENTATION [None]
  - SPEECH DISORDER [None]
  - STEVENS-JOHNSON SYNDROME [None]
  - SYMBLEPHARON [None]
  - TOXIC EPIDERMAL NECROLYSIS [None]
  - VISUAL ACUITY REDUCED [None]
